FAERS Safety Report 7250110-9 (Version None)
Quarter: 2011Q1

REPORT INFORMATION
  Report Type: 
  Country: None (occurrence: None)
  Receive Date: 20110128
  Receipt Date: 20110103
  Transmission Date: 20110831
  Serious: Yes (Other)
  Sender: FDA-Public Use
  Company Number: US-BAYER-2011-002076

PATIENT
  Sex: Male

DRUGS (1)
  1. INTERFERON BETA-1B [Suspect]
     Indication: MULTIPLE SCLEROSIS
     Dosage: 4 MIU, QOD
     Route: 058
     Dates: start: 20101122, end: 20101210

REACTIONS (4)
  - DEPRESSION [None]
  - MEMORY IMPAIRMENT [None]
  - AFFECT LABILITY [None]
  - LOSS OF CONSCIOUSNESS [None]
